FAERS Safety Report 8462935-2 (Version None)
Quarter: 2012Q2

REPORT INFORMATION
  Report Type: 
  Country: None (occurrence: None)
  Receive Date: 20120323
  Receipt Date: 20110809
  Transmission Date: 20120825
  Serious: Yes (Hospitalization)
  Sender: FDA-Public Use
  Company Number: 163-21880-11061734

PATIENT
  Age: 78 Year
  Sex: Female
  Weight: 70.3 kg

DRUGS (12)
  1. PROZAC [Concomitant]
  2. REVLIMID [Suspect]
     Indication: MYELODYSPLASTIC SYNDROME
     Dosage: 5 MG, 1 IN 1 D, PO
     Route: 048
     Dates: start: 20080312, end: 20080701
  3. RANITIDINE [Concomitant]
  4. NEUPOGEN [Concomitant]
  5. ZANTAC [Concomitant]
  6. SIMVASTATIN [Concomitant]
  7. ARANESP [Concomitant]
  8. REVLIMID [Suspect]
     Indication: LYMPHATIC DISORDER
     Dosage: 5 MG, 1 IN 1 D, PO
     Route: 048
     Dates: start: 20110422
  9. CLARITIN [Concomitant]
  10. TOPROL-XL [Concomitant]
  11. PLAVIX [Concomitant]
  12. ATARAX [Concomitant]

REACTIONS (1)
  - DEEP VEIN THROMBOSIS [None]
